FAERS Safety Report 7752152-3 (Version None)
Quarter: 2011Q3

REPORT INFORMATION
  Report Type: 
  Country: None (occurrence: None)
  Receive Date: 20110913
  Receipt Date: 20110830
  Transmission Date: 20111222
  Serious: Yes (Hospitalization, Other)
  Sender: FDA-Public Use
  Company Number: 2010SP063657

PATIENT
  Age: 32 Year
  Sex: Female
  Weight: 61.2356 kg

DRUGS (2)
  1. PHENTERMINE [Concomitant]
  2. NUVARING [Suspect]
     Indication: HORMONE REPLACEMENT THERAPY
     Dates: start: 20080909, end: 20081115

REACTIONS (15)
  - DERMATOMYOSITIS [None]
  - ASTHMA [None]
  - EMOTIONAL DISORDER [None]
  - PAIN IN EXTREMITY [None]
  - VULVOVAGINAL CANDIDIASIS [None]
  - MENTAL DISORDER [None]
  - URINARY TRACT INFECTION [None]
  - HYPERCOAGULATION [None]
  - DEPRESSION [None]
  - THROMBOSIS [None]
  - EYELID INFECTION [None]
  - ANGINA PECTORIS [None]
  - VAGINITIS BACTERIAL [None]
  - EYE INFECTION [None]
  - PULMONARY EMBOLISM [None]
